FAERS Safety Report 6726633-5 (Version None)
Quarter: 2010Q2

REPORT INFORMATION
  Report Type: 
  Country: None (occurrence: None)
  Receive Date: 20100514
  Receipt Date: 20100506
  Transmission Date: 20101027
  Serious: Yes (Hospitalization)
  Sender: FDA-Public Use
  Company Number: JP-ABBOTT-10P-087-0643373-00

PATIENT
  Age: 4 Year
  Sex: Male

DRUGS (5)
  1. SEVOFLURANE [Suspect]
     Indication: INDUCTION AND MAINTENANCE OF ANAESTHESIA
  2. ROCURONIUM BROMIDE [Suspect]
     Indication: DRUG USE FOR UNKNOWN INDICATION
  3. PROPOFOL [Concomitant]
     Indication: DRUG USE FOR UNKNOWN INDICATION
  4. FENTANYL [Concomitant]
     Indication: DRUG USE FOR UNKNOWN INDICATION
  5. NITROUS OXIDE [Concomitant]
     Indication: DRUG USE FOR UNKNOWN INDICATION

REACTIONS (1)
  - RHABDOMYOLYSIS [None]
